FAERS Safety Report 23047759 (Version 1)
Quarter: 2023Q4

REPORT INFORMATION
  Report Type: Spontaneous
  Country: US (occurrence: US)
  Receive Date: 20231010
  Receipt Date: 20231010
  Transmission Date: 20240110
  Serious: Yes (Other)
  Sender: FDA-Public Use
  Company Number: US-TOLMAR, INC.-23US043773

PATIENT
  Age: 10 Year
  Sex: Female

DRUGS (2)
  1. FENSOLVI [Suspect]
     Active Substance: LEUPROLIDE ACETATE
     Indication: Precocious puberty
     Dosage: 45 MILLIGRAM
     Dates: start: 202304, end: 2023
  2. DEVICE [Suspect]
     Active Substance: DEVICE
     Indication: Precocious puberty
     Dosage: UNK

REACTIONS (3)
  - Epiphyses premature fusion [Unknown]
  - Hypertrichosis [Unknown]
  - Intermenstrual bleeding [Unknown]

NARRATIVE: CASE EVENT DATE: 20230101
